FAERS Safety Report 8521175-9 (Version None)
Quarter: 2012Q3

REPORT INFORMATION
  Report Type: 
  Country: None (occurrence: None)
  Receive Date: 20120719
  Receipt Date: 20120709
  Transmission Date: 20120928
  Serious: Yes (Hospitalization)
  Sender: FDA-Public Use
  Company Number: BR-ELI_LILLY_AND_COMPANY-BR201207002680

PATIENT
  Sex: Female

DRUGS (9)
  1. OMEPRAZOLE [Concomitant]
     Dosage: 1 DF, BID
     Route: 065
  2. DEFLAZACORT [Concomitant]
     Indication: SCLERODERMA
     Dosage: UNK, UNKNOWN
     Route: 065
  3. IMURAN [Concomitant]
     Indication: IMMUNOSUPPRESSION
     Dosage: UNK, UNKNOWN
     Route: 065
  4. CALCIO + VITAMINA D [Concomitant]
     Indication: OSTEOPOROSIS
     Dosage: UNK, UNKNOWN
     Route: 065
  5. VYTORIN [Concomitant]
     Indication: BLOOD CHOLESTEROL INCREASED
     Dosage: UNK, UNKNOWN
     Route: 065
  6. PHARMATON [Concomitant]
     Indication: VITAMIN SUPPLEMENTATION
     Dosage: UNK, UNKNOWN
     Route: 065
  7. ENALAPRIL MALEATE [Concomitant]
     Indication: BLOOD PRESSURE
     Dosage: 2 DF, QD
  8. FORTEO [Suspect]
     Indication: OSTEOPOROSIS
     Dosage: 20 UG, QD
     Route: 058
     Dates: start: 20120617
  9. ATENOLOL [Concomitant]
     Indication: HYPERTENSION
     Dosage: UNK, UNKNOWN
     Route: 065

REACTIONS (3)
  - URINARY TRACT INFECTION [None]
  - GASTROINTESTINAL INFECTION [None]
  - BLOOD CHOLESTEROL ABNORMAL [None]
